FAERS Safety Report 6509377-4 (Version None)
Quarter: 2009Q4

REPORT INFORMATION
  Report Type: 
  Country: None (occurrence: None)
  Receive Date: 20091218
  Receipt Date: 20091218
  Transmission Date: 20100525
  Serious: Yes (Hospitalization, Other)
  Sender: FDA-Public Use
  Company Number: None

PATIENT
  Age: 56 Year
  Sex: Female
  Weight: 90.7194 kg

DRUGS (23)
  1. HEPARIN [Suspect]
     Indication: DEEP VEIN THROMBOSIS
     Dosage: 1300 UNITS/HR CONTINUOUS IV DRIP
     Route: 041
     Dates: start: 20091124, end: 20091127
  2. ALLOPURINOL [Concomitant]
  3. CALCITRIOL [Concomitant]
  4. OSCAL [Concomitant]
  5. CEFEPIME [Concomitant]
  6. CYCLOSPORINE [Concomitant]
  7. VITAMIN D [Concomitant]
  8. NEXIUM [Concomitant]
  9. HYDRALAZINE HCL [Concomitant]
  10. ISOSORBIDE DINITRATE [Concomitant]
  11. LABETALOL HCL [Concomitant]
  12. LEVOTHYROXINE SODIUM [Concomitant]
  13. LINEZOLID [Concomitant]
  14. LISINOPRIL [Concomitant]
  15. MYCOPHENOLATE MOFETIL [Concomitant]
  16. ZOFRAN [Concomitant]
  17. POTASSIUM CHLORIDE [Concomitant]
  18. PREDNISONE [Concomitant]
  19. PROPOXYPHENE HCL CAP [Concomitant]
  20. ZOLOFT [Concomitant]
  21. TORSEMIDE [Concomitant]
  22. WARFARIN SODIUM [Concomitant]
  23. ZOLPIDEM TARTRATE [Concomitant]

REACTIONS (3)
  - MUSCLE HAEMORRHAGE [None]
  - MUSCULOSKELETAL PAIN [None]
  - PAIN IN EXTREMITY [None]
